FAERS Safety Report 7110196-9 (Version None)
Quarter: 2010Q4

REPORT INFORMATION
  Report Type: 
  Country: None (occurrence: None)
  Receive Date: 20101116
  Receipt Date: 20101116
  Transmission Date: 20110411
  Serious: No
  Sender: FDA-Public Use
  Company Number: None

PATIENT
  Age: 19 Year
  Sex: Female
  Weight: 80 kg

DRUGS (1)
  1. MULTIHANCE [Suspect]
     Dosage: ONCE TIME ONLY
     Dates: start: 20100810, end: 20100810

REACTIONS (3)
  - DYSPHAGIA [None]
  - NAUSEA [None]
  - URTICARIA [None]
